FAERS Safety Report 11149336 (Version 1)
Quarter: 2015Q2

REPORT INFORMATION
  Report Type: Spontaneous
  Country: US (occurrence: None)
  Receive Date: 20150528
  Receipt Date: 20150528
  Transmission Date: 20150821
  Serious: Yes (Disabling)
  Sender: FDA-Public Use
  Company Number: None

PATIENT
  Age: 37 Year
  Sex: Female
  Weight: 61.24 kg

DRUGS (2)
  1. LEVOTHYROXINE [Concomitant]
     Active Substance: LEVOTHYROXINE
  2. CIPROFLOXACIN HCL 500 MG GENERIC [Suspect]
     Active Substance: CIPROFLOXACIN HYDROCHLORIDE
     Indication: PYELONEPHRITIS ACUTE
     Dosage: 2 PILLS
     Route: 048
     Dates: start: 20150501, end: 20150505

REACTIONS (8)
  - Aggression [None]
  - Pain in extremity [None]
  - Depressed level of consciousness [None]
  - Pain [None]
  - Mobility decreased [None]
  - Cognitive disorder [None]
  - Speech disorder [None]
  - Anger [None]

NARRATIVE: CASE EVENT DATE: 20150506
